FAERS Safety Report 9932672 (Version 1)
Quarter: 2014Q1

REPORT INFORMATION
  Report Type: Spontaneous
  Country: US (occurrence: US)
  Receive Date: 20140228
  Receipt Date: 20140228
  Transmission Date: 20141002
  Serious: No
  Sender: FDA-Public Use
  Company Number: US-GLAXOSMITHKLINE-A1020239A

PATIENT
  Age: 44 Year
  Sex: Female

DRUGS (3)
  1. IMITREX [Suspect]
     Indication: MIGRAINE
     Dosage: 6MG AS REQUIRED
     Route: 058
     Dates: start: 20120924
  2. AMITRIPTYLINE [Concomitant]
  3. OMEPRAZOLE [Concomitant]

REACTIONS (5)
  - Injection site haemorrhage [Recovered/Resolved]
  - Burning sensation [Unknown]
  - Injection site swelling [Unknown]
  - Drug ineffective [Unknown]
  - Product quality issue [Unknown]
